FAERS Safety Report 5289274-5 (Version None)
Quarter: 2007Q2

REPORT INFORMATION
  Report Type: 
  Country: None (occurrence: None)
  Receive Date: 20070404
  Receipt Date: 20070404
  Transmission Date: 20071010
  Serious: Yes (Hospitalization)
  Sender: FDA-Public Use
  Company Number: None

PATIENT
  Age: 58 Year
  Sex: Female
  Weight: 71 kg

DRUGS (1)
  1. THYMOGLOBULIN [Suspect]
     Dosage: 100MG  IV  Q24HOURS
     Route: 042
     Dates: start: 20070327, end: 20070401

REACTIONS (2)
  - PULMONARY OEDEMA [None]
  - TACHYPNOEA [None]
